FAERS Safety Report 6723489-1 (Version None)
Quarter: 2010Q2

REPORT INFORMATION
  Report Type: 
  Country: None (occurrence: None)
  Receive Date: 20100513
  Receipt Date: 20100305
  Transmission Date: 20101027
  Serious: Yes (Hospitalization, Disabling, Other)
  Sender: FDA-Public Use
  Company Number: US-ROCHE-408714

PATIENT
  Sex: Male
  Weight: 83.9 kg

DRUGS (2)
  1. ACCUTANE [Suspect]
     Indication: ACNE
     Dosage: FORMULATION STATED AS 20 MG AND 40 MG CAPSULES.
     Route: 048
     Dates: start: 19950320, end: 19950708
  2. ACCUTANE [Suspect]
     Dosage: FORMULATION STATED AS 20 MG AND 40 MG CAPSULES.
     Route: 048
     Dates: start: 19991129, end: 20000731

REACTIONS (10)
  - ANAL FISSURE [None]
  - BLOOD CHOLESTEROL INCREASED [None]
  - COLITIS [None]
  - DEPRESSION [None]
  - GASTROINTESTINAL DISORDER [None]
  - INFLAMMATORY BOWEL DISEASE [None]
  - INTESTINAL HAEMORRHAGE [None]
  - IRRITABLE BOWEL SYNDROME [None]
  - RECTAL HAEMORRHAGE [None]
  - SUICIDAL IDEATION [None]
